FAERS Safety Report 8027579-5 (Version None)
Quarter: 2012Q1

REPORT INFORMATION
  Report Type: 
  Country: None (occurrence: None)
  Receive Date: 20120106
  Receipt Date: 20111229
  Transmission Date: 20120608
  Serious: Yes (Other)
  Sender: FDA-Public Use
  Company Number: FR-JNJFOC-20111208459

PATIENT
  Age: 39 Year
  Sex: Male
  Weight: 70.2 kg

DRUGS (1)
  1. RISPERDAL CONSTA [Suspect]
     Indication: PRODUCT USED FOR UNKNOWN INDICATION
     Route: 030

REACTIONS (3)
  - POOR QUALITY DRUG ADMINISTERED [None]
  - DELIRIUM [None]
  - INCORRECT STORAGE OF DRUG [None]
